FAERS Safety Report 4435409-3 (Version None)
Quarter: 2004Q3

REPORT INFORMATION
  Report Type: 
  Country: None (occurrence: None)
  Receive Date: 20040826
  Receipt Date: 20040813
  Transmission Date: 20050211
  Serious: Yes (Life-Threatening)
  Sender: FDA-Public Use
  Company Number: 04H-122-0270744-00

PATIENT
  Age: 11 Year
  Sex: Male
  Weight: 36 kg

DRUGS (6)
  1. SUCCINYLCHOLINE CHLORIDE [Suspect]
     Indication: INTUBATION
     Dosage: 50 MG, TWICE, INTRAVENOUS
     Route: 042
  2. HALOTHANE [Suspect]
     Indication: ANAESTHESIA
     Dosage: (1-2%), CONTINUOUS, INHALATION
     Route: 055
  3. ATROPINE [Concomitant]
  4. NITROUS OXIDE [Concomitant]
  5. OXYGEN [Concomitant]
  6. PANCURONIUM [Concomitant]

REACTIONS (8)
  - ANAESTHETIC COMPLICATION [None]
  - APNOEA [None]
  - BLOOD CHOLINESTERASE ABNORMAL [None]
  - BODY TEMPERATURE INCREASED [None]
  - DRUG INTERACTION [None]
  - JOINT STIFFNESS [None]
  - MYALGIA [None]
  - PROCEDURAL COMPLICATION [None]
